FAERS Safety Report 5817053-6 (Version None)
Quarter: 2008Q3

REPORT INFORMATION
  Report Type: 
  Country: None (occurrence: None)
  Receive Date: 20080722
  Receipt Date: 20080715
  Transmission Date: 20090109
  Serious: Yes (Other)
  Sender: FDA-Public Use
  Company Number: GB-TEVA-171101ISR

PATIENT
  Sex: Female

DRUGS (2)
  1. LORATADINE [Suspect]
     Indication: SEASONAL ALLERGY
     Route: 048
     Dates: start: 20080426, end: 20080427
  2. MEDROXYPROGESTERONE [Concomitant]
     Indication: PREMENSTRUAL SYNDROME
     Route: 042

REACTIONS (2)
  - AGGRESSION [None]
  - SUICIDAL IDEATION [None]
